FAERS Safety Report 11631491 (Version 1)
Quarter: 2015Q4

REPORT INFORMATION
  Report Type: Spontaneous
  Country: GB (occurrence: GB)
  Receive Date: 20151015
  Receipt Date: 20151015
  Transmission Date: 20160304
  Serious: No
  Sender: FDA-Public Use
  Company Number: GB-GLENMARK PHARMACEUTICALS INC, USA.-2015GMK016545

PATIENT
  Sex: Male

DRUGS (2)
  1. GABAPENTIN. [Suspect]
     Active Substance: GABAPENTIN
     Indication: PRODUCT USED FOR UNKNOWN INDICATION
     Dosage: UNK
  2. MORPHINE [Suspect]
     Active Substance: MORPHINE
     Indication: PRODUCT USED FOR UNKNOWN INDICATION
     Dosage: UNK

REACTIONS (12)
  - Fatigue [Unknown]
  - Tremor [Unknown]
  - Dysgeusia [Unknown]
  - Somnolence [Unknown]
  - Dry throat [Unknown]
  - Headache [Unknown]
  - Myalgia [Unknown]
  - Disturbance in attention [Unknown]
  - Dizziness [Unknown]
  - Nausea [Unknown]
  - Lethargy [Unknown]
  - Epistaxis [Unknown]
